FAERS Safety Report 15596791 (Version 2)
Quarter: 2018Q4

REPORT INFORMATION
  Report Type: Spontaneous
  Country: US (occurrence: US)
  Receive Date: 20181108
  Receipt Date: 20181113
  Transmission Date: 20190205
  Serious: Yes (Other)
  Sender: FDA-Public Use
  Company Number: US-ABBVIE-18K-163-2545195-00

PATIENT
  Age: 24 Year
  Sex: Male
  Weight: 72 kg

DRUGS (10)
  1. ATENOLOL. [Concomitant]
     Active Substance: ATENOLOL
     Indication: AUTONOMIC NERVOUS SYSTEM IMBALANCE
  2. HUMIRA [Suspect]
     Active Substance: ADALIMUMAB
     Dosage: LOADING DOSE
     Route: 058
     Dates: start: 2018, end: 2018
  3. HUMIRA [Suspect]
     Active Substance: ADALIMUMAB
     Indication: HIDRADENITIS
     Dosage: LOADING DOSE
     Route: 058
     Dates: start: 2018, end: 2018
  4. ATENOLOL. [Concomitant]
     Active Substance: ATENOLOL
     Indication: TACHYCARDIA
  5. SOMA [Concomitant]
     Active Substance: CARISOPRODOL
     Indication: MUSCLE SPASMS
  6. XANAX [Concomitant]
     Active Substance: ALPRAZOLAM
     Indication: ANXIETY
  7. WELLBUTRIN [Concomitant]
     Active Substance: BUPROPION HYDROCHLORIDE
     Indication: PAIN
  8. HUMIRA [Suspect]
     Active Substance: ADALIMUMAB
     Route: 058
     Dates: start: 2018
  9. XANAX [Concomitant]
     Active Substance: ALPRAZOLAM
     Indication: MUSCLE TIGHTNESS
  10. LIDOCAINE. [Concomitant]
     Active Substance: LIDOCAINE
     Indication: FACIAL PAIN

REACTIONS (10)
  - Bone disorder [Recovering/Resolving]
  - Post procedural complication [Recovering/Resolving]
  - Ear pain [Recovering/Resolving]
  - Staphylococcal infection [Recovered/Resolved]
  - Wrong technique in product usage process [Unknown]
  - Injection site pain [Not Recovered/Not Resolved]
  - Neuralgia [Recovering/Resolving]
  - Sinus polyp [Recovering/Resolving]
  - Bone density decreased [Not Recovered/Not Resolved]
  - Incorrect dose administered [Unknown]

NARRATIVE: CASE EVENT DATE: 2018
